FAERS Safety Report 8449901-8 (Version None)
Quarter: 2012Q2

REPORT INFORMATION
  Report Type: 
  Country: None (occurrence: None)
  Receive Date: 20120620
  Receipt Date: 20120612
  Transmission Date: 20120825
  Serious: Yes (Other)
  Sender: FDA-Public Use
  Company Number: PHEH2012US011751

PATIENT
  Sex: Male

DRUGS (5)
  1. LAMICTAL [Concomitant]
     Indication: EPILEPSY
     Dosage: 200 MG, BID
     Route: 048
  2. ACETAMINOPHEN [Concomitant]
     Indication: CONVULSION
     Dosage: 500 MG, PRN
     Route: 048
  3. BISMUTH SUBSALICYLATE [Concomitant]
     Indication: DIARRHOEA
  4. IMODIUM [Concomitant]
     Indication: DIARRHOEA
     Route: 048
  5. TRILEPTAL [Suspect]
     Indication: EPILEPSY
     Dosage: 600 MG, BID
     Route: 048

REACTIONS (2)
  - BLOOD GLUCOSE DECREASED [None]
  - HYPOTHALAMO-PITUITARY DISORDER [None]
